FAERS Safety Report 6270349-9 (Version None)
Quarter: 2009Q3

REPORT INFORMATION
  Report Type: 
  Country: None (occurrence: None)
  Receive Date: 20090716
  Receipt Date: 20090708
  Transmission Date: 20100115
  Serious: Yes (Death, Life-Threatening, Hospitalization)
  Sender: FDA-Public Use
  Company Number: B0570451A

PATIENT
  Age: 37 Year
  Sex: Female

DRUGS (5)
  1. DEROXAT [Suspect]
     Dosage: 20MG PER DAY
     Route: 065
     Dates: start: 20090115, end: 20090330
  2. ZIDOVUDINE [Concomitant]
     Indication: ANTIRETROVIRAL THERAPY
     Route: 065
  3. LAMIVUDINE [Concomitant]
     Indication: ANTIRETROVIRAL THERAPY
     Route: 065
  4. NEVIRAPINE [Concomitant]
     Indication: ANTIRETROVIRAL THERAPY
     Route: 065
  5. AMPHOTERICIN B [Concomitant]
     Indication: DRUG USE FOR UNKNOWN INDICATION
     Route: 065

REACTIONS (4)
  - CELL DEATH [None]
  - HEPATIC FAILURE [None]
  - JAUNDICE [None]
  - TRANSAMINASES INCREASED [None]
